FAERS Safety Report 24094132 (Version 2)
Quarter: 2024Q3

REPORT INFORMATION
  Report Type: Spontaneous
  Country: US (occurrence: US)
  Receive Date: 20240716
  Receipt Date: 20240803
  Transmission Date: 20241017
  Serious: No
  Sender: SANOFI AVENTIS
  Company Number: US-SA-SAC20240710001235

PATIENT
  Age: 26 Year
  Sex: Female

DRUGS (1)
  1. DUPIXENT [Suspect]
     Active Substance: DUPILUMAB
     Indication: Dermatitis atopic
     Dosage: 300 MG, QOW
     Route: 058

REACTIONS (9)
  - Injection site mass [Recovering/Resolving]
  - Injection site bruising [Recovering/Resolving]
  - Injection site pain [Unknown]
  - Wrong technique in product usage process [Unknown]
  - Hunger [Unknown]
  - Dizziness [Unknown]
  - Product dose omission issue [Unknown]
  - Pruritus [Unknown]
  - Therapeutic response shortened [Unknown]
